FAERS Safety Report 9433475 (Version 1)
Quarter: 2013Q3

REPORT INFORMATION
  Report Type: Spontaneous
  Country: GB (occurrence: GB)
  Receive Date: 20130731
  Receipt Date: 20130731
  Transmission Date: 20140515
  Serious: Yes (Disabling, Other)
  Sender: FDA-Public Use
  Company Number: GB-MYLANLABS-2013S1015952

PATIENT
  Age: 65 Year
  Sex: Female
  Weight: 82.55 kg

DRUGS (1)
  1. SIMVASTATIN [Suspect]
     Indication: BLOOD CHOLESTEROL
     Route: 048
     Dates: start: 201303, end: 201307

REACTIONS (5)
  - Insomnia [Unknown]
  - Emotional distress [Unknown]
  - Muscle spasms [Unknown]
  - Pain [Unknown]
  - Abasia [Unknown]
